FAERS Safety Report 4881395-1 (Version None)
Quarter: 2005Q4

REPORT INFORMATION
  Report Type: 
  Country: None (occurrence: None)
  Receive Date: 20051212
  Receipt Date: 20051017
  Transmission Date: 20060501
  Serious: No
  Sender: FDA-Public Use
  Company Number: 2005-02143

PATIENT
  Age: 82 Year
  Sex: Male
  Weight: 69.8 kg

DRUGS (5)
  1. VELCADE [Suspect]
     Indication: MULTIPLE MYELOMA
     Dosage: INTRAVENOUS
     Route: 042
     Dates: start: 20050920
  2. COUMADIN [Suspect]
     Dosage: 2.00 MG, QD, ORAL
     Route: 048
  3. DIGOXIN [Concomitant]
  4. NEXIUM [Concomitant]
  5. AVODART   /USA/ (DUTASTERIDE) [Concomitant]

REACTIONS (2)
  - FATIGUE [None]
  - PROTHROMBIN TIME SHORTENED [None]
